FAERS Safety Report 6938747-5 (Version None)
Quarter: 2010Q3

REPORT INFORMATION
  Report Type: 
  Country: None (occurrence: None)
  Receive Date: 20100817
  Receipt Date: 20100203
  Transmission Date: 20110219
  Serious: No
  Sender: FDA-Public Use
  Company Number: 20108096

PATIENT
  Age: 60 Year
  Sex: Female

DRUGS (3)
  1. LIORESAL [Suspect]
     Indication: MUSCLE SPASTICITY
     Dosage: UNK MCG, DAILY, INTRATHECAL
     Route: 037
  2. DILAUDID [Concomitant]
  3. CLONIDINE [Concomitant]

REACTIONS (1)
  - MUSCLE SPASTICITY [None]
